FAERS Safety Report 20511598 (Version 2)
Quarter: 2022Q1

REPORT INFORMATION
  Report Type: Spontaneous
  Country: US (occurrence: US)
  Receive Date: 20220224
  Receipt Date: 20220308
  Transmission Date: 20220423
  Serious: No
  Sender: FDA-Public Use
  Company Number: US-ELI_LILLY_AND_COMPANY-US202202010054

PATIENT
  Age: 66 Year
  Sex: Female

DRUGS (2)
  1. INSULIN LISPRO [Suspect]
     Active Substance: INSULIN LISPRO
     Dosage: 10 U, UNKNOWN
     Route: 065
  2. INSULIN LISPRO [Suspect]
     Active Substance: INSULIN LISPRO
     Dosage: 16 U, UNKNOWN (14 TO 16)
     Route: 065

REACTIONS (11)
  - Blood glucose increased [Unknown]
  - Blood pressure increased [Recovering/Resolving]
  - Visual impairment [Unknown]
  - Limb injury [Unknown]
  - Foot deformity [Unknown]
  - Feeling abnormal [Recovered/Resolved]
  - Thermal burn [Unknown]
  - Dizziness [Recovered/Resolved]
  - Vertigo [Recovered/Resolved]
  - Incorrect dose administered [Unknown]
  - Wrong technique in product usage process [Unknown]

NARRATIVE: CASE EVENT DATE: 20220223
